FAERS Safety Report 20554888 (Version 1)
Quarter: 2022Q1

REPORT INFORMATION
  Report Type: Spontaneous
  Country: US (occurrence: US)
  Receive Date: 20220304
  Receipt Date: 20220304
  Transmission Date: 20220423
  Serious: No
  Sender: FDA-Public Use
  Company Number: US-ANIPHARMA-2021-US-025859

PATIENT
  Age: 88 Year
  Sex: Male
  Weight: 72.58 kg

DRUGS (8)
  1. CASODEX [Suspect]
     Active Substance: BICALUTAMIDE
     Indication: Prostate cancer
     Dosage: 1 DAILY
     Route: 048
     Dates: start: 20210806, end: 20211127
  2. ELIQUIS [Concomitant]
     Active Substance: APIXABAN
     Route: 065
  3. ATORVASTATIN [Concomitant]
     Active Substance: ATORVASTATIN
     Route: 065
  4. CLOPIDOGREL [Concomitant]
     Active Substance: CLOPIDOGREL BISULFATE
     Route: 065
  5. TAMSULOSIN [Concomitant]
     Active Substance: TAMSULOSIN
     Route: 065
  6. LUPRON [Concomitant]
     Active Substance: LEUPROLIDE ACETATE
     Route: 065
  7. VITAMIN B12 [Concomitant]
     Active Substance: CYANOCOBALAMIN
     Route: 065
  8. VITAMIN D [Concomitant]
     Active Substance: VITAMIN D NOS
     Route: 065

REACTIONS (1)
  - Joint swelling [Not Recovered/Not Resolved]

NARRATIVE: CASE EVENT DATE: 20211127
